FAERS Safety Report 8961072 (Version 2)
Quarter: 2012Q4

REPORT INFORMATION
  Report Type: 
  Country: GB (occurrence: GB)
  Receive Date: 20121212
  Receipt Date: 20121227
  Transmission Date: 20130627
  Serious: Yes (Other)
  Sender: FDA-Public Use
  Company Number: GB-PFIZER INC-2008009342JJ

PATIENT
  Age: 3 None
  Sex: Female

DRUGS (2)
  1. IBUPROFEN [Suspect]
     Indication: DRUG USE FOR UNKNOWN INDICATION
     Dosage: 200 MG, 3 times a day
     Route: 048
  2. EPILIM [Interacting]
     Indication: DRUG USE FOR UNKNOWN INDICATION
     Dosage: 400 MG, 2 IN 1 DAY
     Route: 048
     Dates: start: 200203

REACTIONS (2)
  - Drug interaction [Unknown]
  - Haematemesis [Unknown]
